FAERS Safety Report 10624946 (Version 2)
Quarter: 2014Q4

REPORT INFORMATION
  Report Type: Report from Study
  Country: US (occurrence: US)
  Receive Date: 20141204
  Receipt Date: 20141216
  Transmission Date: 20150529
  Serious: Yes (Hospitalization)
  Sender: FDA-Public Use
  Company Number: US-BIOGENIDEC-2014BI122715

PATIENT
  Age: 37 Year
  Sex: Male

DRUGS (1)
  1. TYSABRI [Suspect]
     Active Substance: NATALIZUMAB
     Indication: MULTIPLE SCLEROSIS
     Route: 042
     Dates: start: 20130530

REACTIONS (9)
  - General symptom [Unknown]
  - Dysstasia [Recovered/Resolved]
  - Peroneal nerve palsy [Recovered/Resolved]
  - Fall [Recovered/Resolved]
  - Back disorder [Recovered/Resolved]
  - Back pain [Recovered/Resolved]
  - Drug dispensing error [Unknown]
  - Abasia [Recovered/Resolved]
  - Mobility decreased [Recovered/Resolved]

NARRATIVE: CASE EVENT DATE: 20141008
